FAERS Safety Report 7965572-9 (Version None)
Quarter: 2011Q4

REPORT INFORMATION
  Report Type: 
  Country: None (occurrence: None)
  Receive Date: 20111208
  Receipt Date: 20111124
  Transmission Date: 20120403
  Serious: Yes (Other)
  Sender: FDA-Public Use
  Company Number: NO-MERCK-1111NOR00007

PATIENT
  Age: 67 Year
  Sex: Female

DRUGS (10)
  1. ZETIA [Suspect]
     Route: 048
     Dates: start: 20090101, end: 20090101
  2. METOPROLOL [Concomitant]
     Route: 048
  3. ESCITALOPRAM OXALATE [Concomitant]
     Route: 048
  4. ASPIRIN [Concomitant]
     Route: 048
  5. ZETIA [Suspect]
     Indication: TYPE IIA HYPERLIPIDAEMIA
     Route: 048
     Dates: start: 20030101, end: 20090101
  6. ZOCOR [Concomitant]
     Route: 048
     Dates: end: 20090101
  7. PREDNISOLONE [Concomitant]
     Route: 048
  8. FLUTICASONE PROPIONATE AND SALMETEROL XINAFOATE [Concomitant]
     Route: 055
  9. ZETIA [Suspect]
     Route: 048
     Dates: start: 20100101, end: 20100101
  10. ZETIA [Suspect]
     Route: 048
     Dates: start: 20090101, end: 20091215

REACTIONS (2)
  - AUTOIMMUNE HEPATITIS [None]
  - OVERDOSE [None]
